FAERS Safety Report 8838368 (Version 1)
Quarter: 2012Q4

REPORT INFORMATION
  Report Type: 
  Country: US (occurrence: US)
  Receive Date: 20121012
  Receipt Date: 20121012
  Transmission Date: 20130627
  Serious: Yes (Hospitalization)
  Sender: FDA-Public Use
  Company Number: US-JNJFOC-20121002754

PATIENT
  Sex: Male

DRUGS (12)
  1. REMICADE [Suspect]
     Indication: ANKYLOSING SPONDYLITIS
     Route: 042
     Dates: start: 20100607
  2. REMICADE [Suspect]
     Indication: ANKYLOSING SPONDYLITIS
     Route: 042
     Dates: start: 20120727
  3. VITAMIN D [Concomitant]
     Route: 065
  4. FOLIC ACID [Concomitant]
     Route: 065
  5. PREVACID [Concomitant]
     Route: 065
  6. DIOVAN [Concomitant]
     Route: 065
  7. ZIAC [Concomitant]
     Dosage: Dose: 5/6.25 mg
     Route: 065
  8. TRICOR [Concomitant]
     Route: 065
  9. CRESTOR [Concomitant]
     Route: 065
  10. SINGULAIR [Concomitant]
     Route: 065
  11. NAPROSYN [Concomitant]
     Indication: PAIN
     Route: 065
  12. MULTIVITAMINS [Concomitant]
     Route: 065

REACTIONS (2)
  - Actinomycosis [Unknown]
  - Nocardiosis [Not Recovered/Not Resolved]
